FAERS Safety Report 20900818 (Version 2)
Quarter: 2022Q2

REPORT INFORMATION
  Report Type: Report from Study
  Country: CN (occurrence: CN)
  Receive Date: 20220601
  Receipt Date: 20220602
  Transmission Date: 20220721
  Serious: Yes (Hospitalization)
  Sender: FDA-Public Use
  Company Number: CN-GLAXOSMITHKLINE-CN2022GSK077251

PATIENT

DRUGS (31)
  1. BELANTAMAB MAFODOTIN [Suspect]
     Active Substance: BELANTAMAB MAFODOTIN
     Indication: Plasma cell myeloma
     Dosage: 2.5 MG/KG, CYC (DAY 1 OF EVERY 21 DAY CYCLE)
     Route: 042
     Dates: start: 20220422
  2. ETAMSYLATE INJECTION [Concomitant]
     Indication: Prophylaxis
     Dosage: 2 G, QD
     Route: 050
     Dates: start: 20220418, end: 20220422
  3. CALCITRIOL SOFT CAPSULES [Concomitant]
     Indication: Osteoporotic fracture
     Dosage: 0.25 UG, QD
     Route: 048
     Dates: start: 20220407
  4. CALCIUM CARBONATE AND VITAMIN D3 TABLETS [Concomitant]
     Indication: Osteoporotic fracture
     Dosage: 0.6 G, QD
     Route: 048
     Dates: start: 20211221
  5. METRONIDAZOLE [Concomitant]
     Active Substance: METRONIDAZOLE
     Indication: Oral infection
     Dosage: 0.4 G, TID
     Route: 048
     Dates: start: 20220415
  6. METHYLCOBALAMIN [Concomitant]
     Active Substance: METHYLCOBALAMIN
     Indication: Nerve conduction studies normal
     Dosage: 0.5 G, TID
     Route: 048
     Dates: start: 20220303
  7. VITAMIN B1 TABLETS [Concomitant]
     Indication: Nerve conduction studies normal
     Dosage: 10 MG, TID
     Route: 048
     Dates: start: 20220303
  8. ASPIRIN [Concomitant]
     Active Substance: ASPIRIN
     Indication: Platelet aggregation inhibition
     Dosage: 100 MG, QD
     Route: 048
     Dates: start: 20220323, end: 20220422
  9. ESZOPICLONE [Concomitant]
     Active Substance: ESZOPICLONE
     Indication: Insomnia
     Dosage: 3 MG, SINGLE
     Route: 048
     Dates: start: 20220411, end: 20220423
  10. CEFUROXIME AXETIL [Concomitant]
     Active Substance: CEFUROXIME AXETIL
     Indication: Oral infection
     Dosage: 0.25 G, BID
     Route: 048
     Dates: start: 20220415, end: 20220422
  11. CEFUROXIME SODIUM [Concomitant]
     Active Substance: CEFUROXIME SODIUM
     Indication: Oral infection
     Dosage: 0.75 G, TID
     Route: 050
     Dates: start: 20220418, end: 20220424
  12. COMPOUND CHLORHEXIDINE GARGLE [Concomitant]
     Indication: Oral infection
     Dosage: 10 ML, TID
     Route: 050
     Dates: start: 20220418, end: 20220422
  13. SODIUM HYALURONATE EYE DROPS [Concomitant]
     Indication: Prophylaxis
     Dosage: 0.1 ML, Z(Q4H)
     Route: 031
     Dates: start: 20220422
  14. OXYCODONE AND ACETAMINOPHEN [Concomitant]
     Active Substance: ACETAMINOPHEN\OXYCODONE HYDROCHLORIDE
     Indication: Bone pain
     Dosage: 0.005 G, PRN
     Route: 048
     Dates: start: 20220306
  15. OXYCODONE AND ACETAMINOPHEN [Concomitant]
     Active Substance: ACETAMINOPHEN\OXYCODONE HYDROCHLORIDE
     Indication: Pain
     Dosage: 0.005 G
     Route: 048
     Dates: start: 20220509
  16. PROMETHAZINE [Concomitant]
     Active Substance: PROMETHAZINE HYDROCHLORIDE
     Indication: Prophylaxis
     Dosage: 25 MG, SINGLE
     Route: 030
     Dates: start: 20220422, end: 20220422
  17. LORATADINE [Concomitant]
     Active Substance: LORATADINE
     Indication: Prophylaxis
     Dosage: 10 MG, SINGLE
     Route: 048
     Dates: start: 20220422, end: 20220422
  18. DEXAMETHASONE SODIUM PHOSPHATE [Concomitant]
     Active Substance: DEXAMETHASONE SODIUM PHOSPHATE
     Indication: Prophylaxis
     Dosage: 10 MG, SINGLE
     Route: 042
     Dates: start: 20220422, end: 20220422
  19. PALONOSETRON HYDROCHLORIDE [Concomitant]
     Active Substance: PALONOSETRON HYDROCHLORIDE
     Indication: Prophylaxis
     Dosage: 0.25 MG, SINGLE
     Route: 042
     Dates: start: 20220422, end: 20220422
  20. FUROSEMIDE [Concomitant]
     Active Substance: FUROSEMIDE
     Indication: Polyuria
     Dosage: 20 MG, SINGLE
     Route: 042
     Dates: start: 20220422, end: 20220422
  21. FUROSEMIDE [Concomitant]
     Active Substance: FUROSEMIDE
     Dosage: 20 MG, QD
     Route: 042
     Dates: start: 20220511, end: 20220513
  22. SODIUM BICARBONATE [Concomitant]
     Active Substance: SODIUM BICARBONATE
     Indication: Prophylaxis
     Dosage: 4 G, SINGLE
     Route: 042
     Dates: start: 20220422, end: 20220422
  23. SODIUM BICARBONATE [Concomitant]
     Active Substance: SODIUM BICARBONATE
     Dosage: 4 G, QD
     Route: 042
     Dates: start: 20220511, end: 20220513
  24. POTASSIUM CHLORIDE [Concomitant]
     Active Substance: POTASSIUM CHLORIDE
     Indication: Prophylaxis
     Dosage: 1.5 G, SINGLE
     Route: 042
     Dates: start: 20220422, end: 20220422
  25. POTASSIUM CHLORIDE [Concomitant]
     Active Substance: POTASSIUM CHLORIDE
     Indication: Prophylaxis
     Dosage: 3 G, SINGLE
     Route: 048
     Dates: start: 20220509, end: 20220509
  26. POTASSIUM CHLORIDE [Concomitant]
     Active Substance: POTASSIUM CHLORIDE
     Dosage: 1.5 G, SINGLE
     Route: 048
     Dates: start: 20220511, end: 20220511
  27. NIFEDIPINE CONTROLLED RELEASE TABLETS [Concomitant]
     Indication: Hypertension
     Dosage: 30 MG, BID
     Route: 048
     Dates: start: 20220420, end: 20220420
  28. DEXTROSE [Concomitant]
     Active Substance: DEXTROSE
     Indication: Fluid retention
     Dosage: 1000 ML, SINGLE
     Route: 042
     Dates: start: 20220422, end: 20220422
  29. DEXTROSE [Concomitant]
     Active Substance: DEXTROSE
     Dosage: 1000 ML, QD
     Route: 042
     Dates: start: 20220511, end: 20220513
  30. SODIUM CHLORIDE [Concomitant]
     Active Substance: SODIUM CHLORIDE
     Indication: Fluid retention
     Dosage: 500 ML, SINGLE
     Route: 042
     Dates: start: 20220422, end: 20220422
  31. SODIUM CHLORIDE [Concomitant]
     Active Substance: SODIUM CHLORIDE
     Indication: Fluid replacement
     Dosage: 1000 ML, QD
     Route: 042
     Dates: start: 20220511, end: 20220513

REACTIONS (2)
  - Bone pain [Recovering/Resolving]
  - Malaise [Not Recovered/Not Resolved]

NARRATIVE: CASE EVENT DATE: 20220509
